FAERS Safety Report 8334496-X (Version None)
Quarter: 2012Q2

REPORT INFORMATION
  Report Type: 
  Country: None (occurrence: None)
  Receive Date: 20120503
  Receipt Date: 20120418
  Transmission Date: 20120825
  Serious: Yes (Hospitalization)
  Sender: FDA-Public Use
  Company Number: CN-JNJFOC-20120502957

PATIENT
  Sex: Male
  Weight: 12 kg

DRUGS (1)
  1. VERMOX [Suspect]
     Indication: ASCARIASIS
     Route: 048
     Dates: start: 20110625, end: 20110626

REACTIONS (2)
  - PRURITUS [None]
  - RASH [None]
